FAERS Safety Report 26184886 (Version 2)
Quarter: 2025Q4

REPORT INFORMATION
  Report Type: Report from Study
  Country: EU (occurrence: EU)
  Receive Date: 20251222
  Receipt Date: 20251229
  Transmission Date: 20260117
  Serious: Yes (Hospitalization)
  Sender: CSL BEHRING
  Company Number: EU-BEH-2025229238

PATIENT
  Age: 23 Year
  Sex: Female
  Weight: 63 kg

DRUGS (1)
  1. HIZENTRA [Suspect]
     Active Substance: HUMAN IMMUNOGLOBULIN G
     Indication: CTLA4 deficiency
     Dosage: 8 G, QW
     Route: 058
     Dates: start: 20251120, end: 20251125

REACTIONS (6)
  - Abdominal pain upper [Recovering/Resolving]
  - Lipase increased [Recovering/Resolving]
  - Pancreatitis [Recovering/Resolving]
  - Cardiovascular disorder [Recovering/Resolving]
  - Bone marrow disorder [Not Recovered/Not Resolved]
  - Drug intolerance [Unknown]

NARRATIVE: CASE EVENT DATE: 20251124
